FAERS Safety Report 15468773 (Version 1)
Quarter: 2018Q4

REPORT INFORMATION
  Report Type: Report from Study
  Country: US (occurrence: US)
  Receive Date: 20181005
  Receipt Date: 20181005
  Transmission Date: 20190204
  Serious: Yes (Hospitalization, Other)
  Sender: FDA-Public Use
  Company Number: US-SAKK-2018SA268484AA

PATIENT
  Age: 46 Year
  Sex: Male

DRUGS (5)
  1. ENOXAPARIN SODIUM. [Suspect]
     Active Substance: ENOXAPARIN SODIUM
     Indication: THROMBOSIS
  2. ENOXAPARIN SODIUM. [Suspect]
     Active Substance: ENOXAPARIN SODIUM
     Indication: NEOPLASM
  3. ENOXAPARIN SODIUM. [Suspect]
     Active Substance: ENOXAPARIN SODIUM
     Indication: HAEMATOLOGICAL MALIGNANCY
  4. ENOXAPARIN SODIUM. [Suspect]
     Active Substance: ENOXAPARIN SODIUM
     Indication: JANUS KINASE 2 MUTATION
     Dosage: 20 MG, Q12H
     Route: 058
     Dates: start: 201706
  5. ENOXAPARIN SODIUM. [Suspect]
     Active Substance: ENOXAPARIN SODIUM
     Indication: MYELOPROLIFERATIVE NEOPLASM
     Dosage: 80 MG, Q12H
     Route: 058

REACTIONS (4)
  - Splenomegaly [Not Recovered/Not Resolved]
  - Stent placement [Unknown]
  - Pain [Not Recovered/Not Resolved]
  - Haemorrhage [Unknown]
